FAERS Safety Report 23506717 (Version 1)
Quarter: 2024Q1

REPORT INFORMATION
  Report Type: Other
  Country: None (occurrence: US)
  Receive Date: 20240209
  Receipt Date: 20240209
  Transmission Date: 20240410
  Serious: No
  Sender: FDA-Public Use
  Company Number: US-SERB S.A.S.-2152920

PATIENT
  Age: 47 Year
  Sex: Male

DRUGS (2)
  1. CYANOKIT [Suspect]
     Active Substance: HYDROXOCOBALAMIN
     Indication: Product used for unknown indication
     Route: 065
  2. METHYLENE BLUE [Suspect]
     Active Substance: METHYLENE BLUE
     Route: 042

REACTIONS (3)
  - Chromaturia [Recovered/Resolved]
  - Medication error [Unknown]
  - Therapeutic product ineffective [Unknown]
